FAERS Safety Report 21794418 (Version 1)
Quarter: 2022Q4

REPORT INFORMATION
  Report Type: Spontaneous
  Country: US (occurrence: US)
  Receive Date: 20221229
  Receipt Date: 20221229
  Transmission Date: 20230113
  Serious: No
  Sender: FDA-Public Use
  Company Number: US-009507513-2212USA005790

PATIENT
  Age: 52 Year
  Sex: Female

DRUGS (1)
  1. BELSOMRA [Suspect]
     Active Substance: SUVOREXANT
     Indication: Insomnia
     Dosage: 10 MG
     Dates: start: 202210, end: 2022

REACTIONS (1)
  - Abnormal sleep-related event [Unknown]

NARRATIVE: CASE EVENT DATE: 20220101
